FAERS Safety Report 18695105 (Version 1)
Quarter: 2021Q1

REPORT INFORMATION
  Report Type: Spontaneous
  Country: US (occurrence: US)
  Receive Date: 20210104
  Receipt Date: 20210104
  Transmission Date: 20210419
  Serious: Yes (Hospitalization, Other)
  Sender: FDA-Public Use
  Company Number: US-MYLANLABS-2020M1106519

PATIENT
  Age: 37 Year
  Sex: Male

DRUGS (11)
  1. MYCOPHENOLATE MOFETIL. [Suspect]
     Active Substance: MYCOPHENOLATE MOFETIL
     Dosage: 3000 MILLIGRAM, QD APPROXIMATELY....
     Route: 065
  2. RITUXIMAB. [Concomitant]
     Active Substance: RITUXIMAB
     Indication: AUTOIMMUNE HEPATITIS
     Dosage: UNK
     Route: 065
  3. TACROLIMUS. [Suspect]
     Active Substance: TACROLIMUS
     Dosage: 1 MILLIGRAM, QD
     Route: 065
  4. AZATHIOPRINE. [Suspect]
     Active Substance: AZATHIOPRINE
     Indication: AUTOIMMUNE HEPATITIS
     Dosage: DOSAGE AT THE TIME OF....
     Route: 065
  5. METHYLPREDNISOLONE. [Concomitant]
     Active Substance: METHYLPREDNISOLONE
     Indication: AUTOIMMUNE HEPATITIS
     Dosage: 20 MILLIGRAM, BID
     Route: 065
  6. TACROLIMUS. [Suspect]
     Active Substance: TACROLIMUS
     Indication: AUTOIMMUNE HEPATITIS
     Dosage: 3 MILLIGRAM, BID TROUGH LEVELS 3?8
     Route: 065
  7. HYDROXYCHLOROQUINE [Suspect]
     Active Substance: HYDROXYCHLOROQUINE
     Indication: COVID-19
     Dosage: UNK
     Route: 065
  8. REMDESIVIR. [Suspect]
     Active Substance: REMDESIVIR
     Indication: COVID-19
     Dosage: UNK
     Route: 065
  9. PREDNISONE. [Concomitant]
     Active Substance: PREDNISONE
     Dosage: 15 MILLIGRAM, BID
     Route: 065
  10. MYCOPHENOLATE MOFETIL. [Suspect]
     Active Substance: MYCOPHENOLATE MOFETIL
     Indication: AUTOIMMUNE HEPATITIS
     Dosage: DOSAGE AT THE TIME OF ...
     Route: 065
  11. PREDNISONE. [Concomitant]
     Active Substance: PREDNISONE
     Indication: AUTOIMMUNE HEPATITIS
     Dosage: 10 MILLIGRAM, BID
     Route: 065

REACTIONS (3)
  - Off label use [Unknown]
  - Drug ineffective [Unknown]
  - Viral load abnormal [Recovering/Resolving]
